FAERS Safety Report 6157771-6 (Version None)
Quarter: 2009Q2

REPORT INFORMATION
  Report Type: 
  Country: None (occurrence: None)
  Receive Date: 20090414
  Receipt Date: 20090402
  Transmission Date: 20091009
  Serious: Yes (Other)
  Sender: FDA-Public Use
  Company Number: 2009002835

PATIENT
  Age: 60 Year
  Sex: Female

DRUGS (8)
  1. FENTORA [Suspect]
     Dosage: (4 IN 1 D), BU
  2. LYRICA [Concomitant]
  3. MORPHINE [Concomitant]
  4. OXYCODONE HCL [Concomitant]
  5. ATIVAN [Concomitant]
  6. TRILEPTAL [Concomitant]
  7. LASIX [Concomitant]
  8. SYNTHROID [Concomitant]

REACTIONS (12)
  - ACCIDENTAL EXPOSURE [None]
  - BLOOD PRESSURE SYSTOLIC INCREASED [None]
  - DROOLING [None]
  - ELECTROCARDIOGRAM ABNORMAL [None]
  - HEART RATE INCREASED [None]
  - LETHARGY [None]
  - MEDICATION ERROR [None]
  - MENTAL STATUS CHANGES [None]
  - NO THERAPEUTIC RESPONSE [None]
  - OVERDOSE [None]
  - POSTURING [None]
  - UNRESPONSIVE TO STIMULI [None]
